FAERS Safety Report 17890430 (Version 1)
Quarter: 2020Q2

REPORT INFORMATION
  Report Type: Report from Study
  Country: BR (occurrence: BR)
  Receive Date: 20200612
  Receipt Date: 20200612
  Transmission Date: 20200714
  Serious: Yes (Other)
  Sender: FDA-Public Use
  Company Number: PHHY2017BR171123

PATIENT
  Age: 56 Year
  Sex: Female
  Weight: 56 kg

DRUGS (8)
  1. VIMOVO [Concomitant]
     Active Substance: ESOMEPRAZOLE MAGNESIUM\NAPROXEN
     Indication: PAIN
     Dosage: 500 MG, BID
     Route: 048
     Dates: start: 20171120
  2. CAPTOPRIL. [Concomitant]
     Active Substance: CAPTOPRIL
     Indication: HYPERTENSION
     Dosage: 3 DF, QD
     Route: 048
     Dates: start: 2011
  3. COSENTYX [Suspect]
     Active Substance: SECUKINUMAB
     Indication: PSORIASIS
     Dosage: 300 MG, QMO
     Route: 058
     Dates: start: 20170831
  4. COSENTYX [Suspect]
     Active Substance: SECUKINUMAB
     Dosage: 300 MG, UNK
     Route: 058
  5. COSENTYX [Suspect]
     Active Substance: SECUKINUMAB
     Dosage: 300 MG, QMO
     Route: 058
     Dates: start: 20190204
  6. AMLODIPINE BESYLATE. [Concomitant]
     Active Substance: AMLODIPINE BESYLATE
     Indication: HYPERTENSION
     Dosage: 5 MG, QD
     Route: 048
     Dates: start: 201707
  7. COSENTYX [Suspect]
     Active Substance: SECUKINUMAB
     Indication: PSORIATIC ARTHROPATHY
     Dosage: UNK
     Route: 058
     Dates: start: 20180917
  8. RIVOTRIL [Concomitant]
     Active Substance: CLONAZEPAM
     Indication: ANXIETY
     Dosage: 2 MG, QD
     Route: 048
     Dates: start: 2011

REACTIONS (43)
  - Mobility decreased [Unknown]
  - Arthralgia [Not Recovered/Not Resolved]
  - Sleep disorder [Not Recovered/Not Resolved]
  - Nervousness [Recovered/Resolved]
  - Hypertension [Recovered/Resolved]
  - Weight increased [Unknown]
  - Skin lesion [Not Recovered/Not Resolved]
  - Gastric mucosal lesion [Recovered/Resolved]
  - Malaise [Recovered/Resolved]
  - Pyrexia [Recovered/Resolved]
  - Cough [Unknown]
  - Sinusitis [Unknown]
  - Rhinitis [Recovered/Resolved]
  - Depression [Recovered/Resolved with Sequelae]
  - Psoriatic arthropathy [Not Recovered/Not Resolved]
  - Joint stiffness [Not Recovered/Not Resolved]
  - Peripheral swelling [Unknown]
  - Dizziness [Recovered/Resolved]
  - Productive cough [Unknown]
  - Fear of disease [Recovered/Resolved]
  - Hypersensitivity [Not Recovered/Not Resolved]
  - Pain in extremity [Recovered/Resolved]
  - Influenza [Recovered/Resolved]
  - Pain [Not Recovered/Not Resolved]
  - Arthritis [Not Recovered/Not Resolved]
  - Gait inability [Unknown]
  - Psoriasis [Unknown]
  - Emotional disorder [Recovered/Resolved]
  - Inappropriate schedule of product administration [Unknown]
  - Joint swelling [Recovering/Resolving]
  - Urinary tract infection [Recovered/Resolved]
  - Influenza [Recovered/Resolved]
  - Skin discolouration [Not Recovered/Not Resolved]
  - Influenza [Recovered/Resolved]
  - Concomitant disease aggravated [Recovered/Resolved]
  - Anxiety [Recovered/Resolved]
  - Therapeutic response shortened [Not Recovered/Not Resolved]
  - Inflammation [Recovering/Resolving]
  - Tension [Recovered/Resolved]
  - Memory impairment [Unknown]
  - Nasopharyngitis [Recovered/Resolved]
  - Sneezing [Unknown]
  - Dry skin [Unknown]

NARRATIVE: CASE EVENT DATE: 201808
